FAERS Safety Report 20647638 (Version 2)
Quarter: 2022Q2

REPORT INFORMATION
  Report Type: Other
  Country: JP (occurrence: JP)
  Receive Date: 20220329
  Receipt Date: 20220526
  Transmission Date: 20220721
  Serious: Yes (Other)
  Sender: FDA-Public Use
  Company Number: JP-CHUGAI-2021023742

PATIENT
  Age: 70 Year
  Sex: Male
  Weight: 50.9 kg

DRUGS (7)
  1. ATEZOLIZUMAB [Suspect]
     Active Substance: ATEZOLIZUMAB
     Indication: Non-small cell lung cancer
     Dosage: 1200 MILLIGRAM, ONCE/3WEEKS
     Route: 041
     Dates: start: 20210202, end: 20210405
  2. ATEZOLIZUMAB [Suspect]
     Active Substance: ATEZOLIZUMAB
     Dosage: 1200 MILLIGRAM
     Route: 041
     Dates: start: 2021, end: 20210628
  3. ABRAXANE [Suspect]
     Active Substance: PACLITAXEL
     Indication: Non-small cell lung cancer
     Dosage: 155 MILLIGRAM
     Route: 041
     Dates: start: 20210202
  4. ABRAXANE [Suspect]
     Active Substance: PACLITAXEL
     Dosage: 120 MILLIGRAM, ONCE/WEEK
     Route: 041
     Dates: start: 20210222, end: 20210301
  5. ABRAXANE [Suspect]
     Active Substance: PACLITAXEL
     Dosage: 120 MILLIGRAM, ONCE/WEEK
     Route: 041
     Dates: start: 20210315, end: 20210322
  6. ABRAXANE [Suspect]
     Active Substance: PACLITAXEL
     Dosage: 120 MILLIGRAM, ONCE/WEEK
     Route: 041
     Dates: start: 20210405, end: 20210412
  7. CARBOPLATIN [Concomitant]
     Active Substance: CARBOPLATIN
     Indication: Non-small cell lung cancer
     Dosage: 280 MILLIGRAM
     Route: 041
     Dates: start: 20210202, end: 20210405

REACTIONS (2)
  - Pulmonary toxicity [Recovering/Resolving]
  - Neutrophil count decreased [Recovered/Resolved]

NARRATIVE: CASE EVENT DATE: 20210208
